FAERS Safety Report 8079268-9 (Version None)
Quarter: 2012Q1

REPORT INFORMATION
  Report Type: 
  Country: None (occurrence: None)
  Receive Date: 20120128
  Receipt Date: 20110819
  Transmission Date: 20120608
  Serious: No
  Sender: FDA-Public Use
  Company Number: US-ABBOTT-11P-163-0848285-00

PATIENT
  Sex: Female
  Weight: 104.42 kg

DRUGS (7)
  1. FOLIC ACID [Concomitant]
     Indication: RHEUMATOID ARTHRITIS
  2. PRAVASTATIN [Concomitant]
     Indication: BLOOD CHOLESTEROL INCREASED
  3. HUMIRA [Suspect]
     Route: 058
     Dates: start: 20110501
  4. METHOTREXATE [Concomitant]
     Indication: RHEUMATOID ARTHRITIS
  5. HUMIRA [Suspect]
     Indication: RHEUMATOID ARTHRITIS
     Route: 058
     Dates: start: 20100501, end: 20110501
  6. AMLODIPINE [Concomitant]
     Indication: BLOOD PRESSURE
  7. SERTRALINE HYDROCHLORIDE [Concomitant]
     Indication: MOOD ALTERED

REACTIONS (3)
  - PRURITUS [None]
  - BLISTER [None]
  - RASH [None]
